FAERS Safety Report 8828519 (Version 1)
Quarter: 2012Q4

REPORT INFORMATION
  Report Type: 
  Country: DE (occurrence: DE)
  Receive Date: 20121005
  Receipt Date: 20121005
  Transmission Date: 20130627
  Serious: Yes (Life-Threatening)
  Sender: FDA-Public Use
  Company Number: DE-B.I. PHARMACEUTICALS,INC./RIDGEFIELD-2012-DE-02129DE

PATIENT
  Age: 73 Year
  Sex: Female
  Weight: 59 kg

DRUGS (9)
  1. PRADAXA [Suspect]
     Indication: ATRIAL FIBRILLATION
     Dosage: 220 mg
     Route: 048
     Dates: start: 201202, end: 20120325
  2. VERAPAMIL [Concomitant]
     Indication: ATRIAL FIBRILLATION
     Dosage: 330 NR
     Route: 048
     Dates: start: 201202
  3. RAMIPRIL [Concomitant]
     Indication: HYPERTENSION
     Dosage: 2.5 NR
     Route: 048
  4. PREDNISOLON [Concomitant]
     Route: 048
  5. TOREM [Concomitant]
  6. SPIRONOLACTON [Concomitant]
     Dosage: 25 NR
  7. PANTOPROZOL [Concomitant]
     Dosage: 20 NR
  8. SYMBICORT [Concomitant]
     Dosage: 160/4.5
  9. INSULIN [Concomitant]
     Indication: BLOOD GLUCOSE FLUCTUATION

REACTIONS (7)
  - Disseminated intravascular coagulation [Recovered/Resolved]
  - Coagulopathy [Recovered/Resolved]
  - Shock haemorrhagic [Recovered/Resolved]
  - Gastrointestinal haemorrhage [Recovered/Resolved]
  - Shock [Unknown]
  - Gastroenteritis norovirus [Unknown]
  - Diarrhoea haemorrhagic [Unknown]
